FAERS Safety Report 5028843-4 (Version None)
Quarter: 2006Q2

REPORT INFORMATION
  Report Type: 
  Country: None (occurrence: None)
  Receive Date: 20060619
  Receipt Date: 20060608
  Transmission Date: 20061013
  Serious: Yes (Other)
  Sender: FDA-Public Use
  Company Number: US-AVENTIS-200615115US

PATIENT
  Age: 57 Year
  Sex: Female

DRUGS (1)
  1. INDAPAMIDE [Suspect]
     Dosage: DOSE: UNK

REACTIONS (4)
  - LACERATION [None]
  - LOSS OF CONSCIOUSNESS [None]
  - PAIN [None]
  - URINARY TRACT INFECTION [None]
